FAERS Safety Report 11825769 (Version 1)
Quarter: 2015Q4

REPORT INFORMATION
  Report Type: Spontaneous
  Country: GB (occurrence: GB)
  Receive Date: 20151211
  Receipt Date: 20151211
  Transmission Date: 20160305
  Serious: Yes (Hospitalization)
  Sender: FDA-Public Use
  Company Number: GB-AUROBINDO-AUR-APL-2015-11247

PATIENT
  Sex: Female

DRUGS (3)
  1. LOSARTAN 100MG [Suspect]
     Active Substance: LOSARTAN
     Dosage: 100 MG, UNK
     Route: 065
     Dates: start: 20150825
  2. LOSARTAN 100MG [Suspect]
     Active Substance: LOSARTAN
     Indication: HYPERTENSION
     Dosage: 50 MG, UNK
  3. LOSARTAN 100MG [Suspect]
     Active Substance: LOSARTAN
     Dosage: 75 MG, UNK
     Route: 065
     Dates: start: 20150812

REACTIONS (2)
  - Hypertension [Unknown]
  - Palpitations [Unknown]
